FAERS Safety Report 22990002 (Version 2)
Quarter: 2024Q1

REPORT INFORMATION
  Report Type: Spontaneous
  Country: US (occurrence: US)
  Receive Date: 20230927
  Receipt Date: 20240325
  Transmission Date: 20240410
  Serious: No
  Sender: FDA-Public Use
  Company Number: US-SA-SAC20230920000136

PATIENT
  Sex: Male

DRUGS (1)
  1. DUPIXENT [Suspect]
     Active Substance: DUPILUMAB
     Indication: Dermatitis atopic
     Dosage: 300 MG, Q4W
     Route: 058
     Dates: start: 20230628

REACTIONS (5)
  - Pustule [Unknown]
  - Pruritus [Unknown]
  - Erythema [Unknown]
  - Rash [Unknown]
  - Product dose omission issue [Unknown]
